FAERS Safety Report 8217708-2 (Version None)
Quarter: 2012Q1

REPORT INFORMATION
  Report Type: 
  Country: None (occurrence: None)
  Receive Date: 20120319
  Receipt Date: 20120315
  Transmission Date: 20120608
  Serious: No
  Sender: FDA-Public Use
  Company Number: US-B.I. PHARMACEUTICALS,INC./RIDGEFIELD-2012-BP-05053BP

PATIENT
  Sex: Female

DRUGS (9)
  1. LIPITOR [Concomitant]
     Indication: BLOOD CHOLESTEROL INCREASED
     Dosage: 10 MG
     Route: 048
     Dates: start: 20050101
  2. ELOPRIL [Concomitant]
     Dosage: 20 MG
     Route: 048
     Dates: start: 20050101
  3. COREG [Concomitant]
     Indication: CARDIAC FAILURE
     Dosage: 20 MG
     Route: 048
     Dates: start: 20050101
  4. POTASSIUM [Concomitant]
     Indication: SUPPLEMENTATION THERAPY
     Dosage: 40 MG
     Route: 048
     Dates: start: 20050101
  5. TRADJENTA [Suspect]
     Indication: TYPE 2 DIABETES MELLITUS
     Dosage: 5 MG
     Route: 048
     Dates: start: 20120313
  6. TRICOR [Concomitant]
     Indication: BLOOD CHOLESTEROL INCREASED
     Dosage: 25 MG
     Route: 048
     Dates: start: 20050101
  7. DIGOXIN [Concomitant]
     Indication: CARDIAC FAILURE
     Dosage: 25 MG
     Route: 048
     Dates: start: 20050101
  8. SPIRONOLACTONE [Concomitant]
     Indication: CARDIAC FAILURE
     Dosage: 10 MG
     Route: 048
     Dates: start: 20050101
  9. LASIX [Concomitant]
     Indication: CARDIAC FAILURE
     Dosage: 160 MG
     Route: 048
     Dates: start: 20050101

REACTIONS (1)
  - OEDEMA PERIPHERAL [None]
